FAERS Safety Report 9718078 (Version 1)
Quarter: 2013Q4

REPORT INFORMATION
  Report Type: Not Available
  Country: US (occurrence: US)
  Receive Date: 20131125
  Receipt Date: 20131125
  Transmission Date: 20140711
  Serious: No
  Sender: FDA-Public Use
  Company Number: US-VIVUS-2013V1000505

PATIENT
  Age: 67 Year
  Sex: Male
  Weight: 90.35 kg

DRUGS (5)
  1. QSYMIA 3.75MG/23MG [Suspect]
     Indication: WEIGHT DECREASED
     Route: 048
     Dates: start: 201301, end: 201301
  2. QSYMIA 7.5MG/46MG [Suspect]
     Indication: WEIGHT DECREASED
     Route: 048
     Dates: start: 201301
  3. METFORMIN [Concomitant]
     Indication: TYPE 2 DIABETES MELLITUS
     Dosage: STARTED YEARS AGO
     Route: 048
  4. SIMVASTATIN [Concomitant]
     Indication: BLOOD CHOLESTEROL
     Route: 048
     Dates: start: 2001
  5. UNSPECIFIED BLOOD PRESSURE MEDICATION [Concomitant]
     Indication: BLOOD PRESSURE
     Route: 048
     Dates: start: 2001

REACTIONS (1)
  - Paraesthesia [Not Recovered/Not Resolved]
